APPROVED DRUG PRODUCT: CLADRIBINE
Active Ingredient: CLADRIBINE
Strength: 1MG/ML
Dosage Form/Route: INJECTABLE;INJECTION
Application: A075405 | Product #001 | TE Code: AP
Applicant: HIKMA PHARMACEUTICALS USA INC
Approved: Feb 28, 2000 | RLD: No | RS: No | Type: RX